FAERS Safety Report 6321523-4 (Version None)
Quarter: 2009Q3

REPORT INFORMATION
  Report Type: 
  Country: None (occurrence: None)
  Receive Date: 20090824
  Receipt Date: 20071116
  Transmission Date: 20100115
  Serious: Yes (Other)
  Sender: FDA-Public Use
  Company Number: US-ASTRAZENECA-2006UW27767

PATIENT
  Age: 595 Month
  Sex: Female
  Weight: 79.4 kg

DRUGS (13)
  1. SEROQUEL [Suspect]
     Indication: BIPOLAR DISORDER
     Dosage: 100 MG, 200 MG, 300 MG
     Route: 048
     Dates: start: 20000101
  2. SEROQUEL [Suspect]
     Indication: DEPRESSION
     Dosage: 100 MG, 200 MG, 300 MG
     Route: 048
     Dates: start: 20000101
  3. SEROQUEL [Suspect]
     Indication: INSOMNIA
     Dosage: 100 MG, 200 MG, 300 MG
     Route: 048
     Dates: start: 20000101
  4. SEROQUEL [Suspect]
     Dosage: 50-200 MG
     Route: 048
     Dates: start: 20060220
  5. SEROQUEL [Suspect]
     Dosage: 50-200 MG
     Route: 048
     Dates: start: 20060220
  6. SEROQUEL [Suspect]
     Dosage: 50-200 MG
     Route: 048
     Dates: start: 20060220
  7. ABILIFY [Concomitant]
     Dates: start: 20020101
  8. HALDOL [Concomitant]
     Dosage: 10 TO 20 MG
     Dates: start: 19840101, end: 20020101
  9. RISPERDAL [Concomitant]
     Dates: start: 19990101, end: 20010101
  10. ZYPREXA [Concomitant]
     Dates: start: 19990101, end: 20010101
  11. LAMICTAL [Concomitant]
  12. GABITRIL [Concomitant]
  13. XANAX [Concomitant]

REACTIONS (4)
  - DIABETES MELLITUS [None]
  - EXTRAPYRAMIDAL DISORDER [None]
  - NEUROPATHY PERIPHERAL [None]
  - TYPE 2 DIABETES MELLITUS [None]
